FAERS Safety Report 25311016 (Version 5)
Quarter: 2025Q4

REPORT INFORMATION
  Report Type: Report from Study
  Country: US (occurrence: US)
  Receive Date: 20250514
  Receipt Date: 20251028
  Transmission Date: 20260117
  Serious: Yes (Other)
  Sender: TAKEDA
  Company Number: US-TAKEDA-2021TUS060959

PATIENT
  Sex: Female

DRUGS (4)
  1. HUMAN IMMUNOGLOBULIN G [Suspect]
     Active Substance: HUMAN IMMUNOGLOBULIN G
     Indication: Immunodeficiency common variable
     Dosage: UNK
  2. HUMAN IMMUNOGLOBULIN G [Suspect]
     Active Substance: HUMAN IMMUNOGLOBULIN G
     Indication: Primary immunodeficiency syndrome
     Dosage: UNK UNK, Q4WEEKS
  3. HUMAN IMMUNOGLOBULIN G [Suspect]
     Active Substance: HUMAN IMMUNOGLOBULIN G
     Dosage: 8 GRAM, 1/WEEK
  4. HUMAN IMMUNOGLOBULIN G [Suspect]
     Active Substance: HUMAN IMMUNOGLOBULIN G
     Dosage: UNK

REACTIONS (11)
  - Pulmonary fibrosis [Unknown]
  - Headache [Unknown]
  - Suspected COVID-19 [Recovered/Resolved]
  - Dysphagia [Unknown]
  - Insurance issue [Unknown]
  - Infusion site irritation [Unknown]
  - Brain fog [Unknown]
  - Panic attack [Unknown]
  - Depressed mood [Unknown]
  - Influenza like illness [Unknown]
  - Fatigue [Unknown]

NARRATIVE: CASE EVENT DATE: 20250716
